FAERS Safety Report 9109335 (Version 4)
Quarter: 2015Q1

REPORT INFORMATION
  Report Type: Spontaneous
  Country: US (occurrence: US)
  Receive Date: 20130222
  Receipt Date: 20150331
  Transmission Date: 20150721
  Serious: No
  Sender: FDA-Public Use
  Company Number: US-ASTRAZENECA-2013SE10548

PATIENT
  Age: 41 Year
  Sex: Male
  Weight: 117.9 kg

DRUGS (3)
  1. NEXIUM [Suspect]
     Active Substance: ESOMEPRAZOLE MAGNESIUM
     Indication: BARRETT^S OESOPHAGUS
     Route: 048
  2. NEXIUM [Suspect]
     Active Substance: ESOMEPRAZOLE MAGNESIUM
     Indication: BARRETT^S OESOPHAGUS
     Route: 048
  3. NEXIUM [Suspect]
     Active Substance: ESOMEPRAZOLE MAGNESIUM
     Indication: BARRETT^S OESOPHAGUS
     Route: 048

REACTIONS (12)
  - Weight increased [Unknown]
  - Drug dose omission [Unknown]
  - Drug dose omission [Not Recovered/Not Resolved]
  - Nasopharyngitis [Unknown]
  - Product use issue [Unknown]
  - Regurgitation [Unknown]
  - Intentional product misuse [Unknown]
  - Hypophagia [Not Recovered/Not Resolved]
  - Choking sensation [Not Recovered/Not Resolved]
  - Adverse event [Unknown]
  - Off label use [Unknown]
  - Sleep disorder due to general medical condition, insomnia type [Unknown]

NARRATIVE: CASE EVENT DATE: 2015
